FAERS Safety Report 6818012-7 (Version None)
Quarter: 2010Q3

REPORT INFORMATION
  Report Type: 
  Country: None (occurrence: None)
  Receive Date: 20100706
  Receipt Date: 20100624
  Transmission Date: 20110219
  Serious: Yes (Other)
  Sender: FDA-Public Use
  Company Number: BR-PFIZER INC-2010066007

PATIENT
  Age: 62 Year
  Sex: Male
  Weight: 89 kg

DRUGS (5)
  1. GABAPENTIN [Suspect]
     Indication: TRIGEMINAL NERVE DISORDER
     Dosage: 300 MG, 3 OR 4 TABLETS DAILY
     Route: 048
     Dates: start: 20081201
  2. PHENYTOIN [Concomitant]
     Dosage: UNK
     Dates: start: 20081201
  3. ATENOLOL [Concomitant]
     Indication: HYPERTENSION
     Dosage: UNK
     Dates: start: 20000101
  4. INDAPAMIDE [Concomitant]
     Indication: HYPERTENSION
     Dosage: UNK
     Dates: start: 20000101
  5. ASPIRIN [Concomitant]
     Dosage: UNK
     Dates: start: 20000101

REACTIONS (3)
  - HYPERSENSITIVITY [None]
  - RASH PRURITIC [None]
  - WOUND [None]
